FAERS Safety Report 4766136-0 (Version None)
Quarter: 2005Q3

REPORT INFORMATION
  Report Type: 
  Country: None (occurrence: None)
  Receive Date: 20050912
  Receipt Date: 20050310
  Transmission Date: 20060218
  Serious: Yes (Hospitalization, Disabling)
  Sender: FDA-Public Use
  Company Number: US-MERCK-0503USA02079

PATIENT
  Age: 44 Year
  Sex: Male
  Weight: 86 kg

DRUGS (7)
  1. VIOXX [Suspect]
     Indication: BACK PAIN
     Route: 048
     Dates: start: 19990915, end: 20000601
  2. VIOXX [Suspect]
     Route: 048
     Dates: start: 20000626, end: 20020801
  3. VIOXX [Suspect]
     Route: 048
     Dates: start: 20000816, end: 20020301
  4. VIOXX [Suspect]
     Indication: SPINAL OSTEOARTHRITIS
     Route: 048
     Dates: start: 19990915, end: 20000601
  5. VIOXX [Suspect]
     Route: 048
     Dates: start: 20000626, end: 20020801
  6. VIOXX [Suspect]
     Route: 048
     Dates: start: 20000816, end: 20020301
  7. ASPIRIN [Concomitant]
     Route: 065

REACTIONS (34)
  - ABDOMINAL DISTENSION [None]
  - ACUTE CORONARY SYNDROME [None]
  - ANGINA PECTORIS [None]
  - ANGINA UNSTABLE [None]
  - BACK PAIN [None]
  - BLOOD CHOLESTEROL INCREASED [None]
  - BURSITIS [None]
  - CELLULITIS [None]
  - CHEST DISCOMFORT [None]
  - CHEST PAIN [None]
  - CONDITION AGGRAVATED [None]
  - CORONARY ARTERY DISEASE [None]
  - EMOTIONAL DISTRESS [None]
  - ERECTILE DYSFUNCTION [None]
  - FATIGUE [None]
  - FOLLICULITIS [None]
  - HAND FRACTURE [None]
  - HILAR LYMPHADENOPATHY [None]
  - HYPERLIPIDAEMIA [None]
  - INTERVERTEBRAL DISC DEGENERATION [None]
  - ISCHAEMIC CARDIOMYOPATHY [None]
  - JOINT CONTRACTURE [None]
  - MYOCARDIAL INFARCTION [None]
  - MYOCARDIAL ISCHAEMIA [None]
  - OPEN FRACTURE [None]
  - OSTEOARTHRITIS [None]
  - OVERDOSE [None]
  - PAIN [None]
  - PANIC DISORDER [None]
  - SINUSITIS [None]
  - SYNOSTOSIS [None]
  - TENDONITIS [None]
  - UPPER AIRWAY RESISTANCE SYNDROME [None]
  - UPPER RESPIRATORY TRACT INFECTION [None]
